FAERS Safety Report 16544279 (Version 1)
Quarter: 2019Q3

REPORT INFORMATION
  Report Type: Other
  Country: DE (occurrence: DE)
  Receive Date: 20190709
  Receipt Date: 20190709
  Transmission Date: 20191004
  Serious: Yes (Hospitalization)
  Sender: FDA-Public Use
  Company Number: DE-GLENMARK PHARMACEUTICALS-2019GMK041995

PATIENT

DRUGS (2)
  1. TOPIRAMAT [Suspect]
     Active Substance: TOPIRAMATE
     Dosage: 75 MG, OD (75 MG , W?CHENTLICH STEIGERND VON ANFANGS 25 MG)
     Route: 048
     Dates: end: 20190518
  2. TOPIRAMAT [Suspect]
     Active Substance: TOPIRAMATE
     Indication: PRODUCT USED FOR UNKNOWN INDICATION
     Dosage: 25 MG, OD (75 MG , W?CHENTLICH STEIGERND VON ANFANGS 25 MG)
     Route: 048
     Dates: start: 20190403

REACTIONS (5)
  - Renal colic [Recovered/Resolved]
  - Gait disturbance [Recovering/Resolving]
  - Fatigue [Recovering/Resolving]
  - Feeling drunk [Recovering/Resolving]
  - Somnolence [Recovering/Resolving]

NARRATIVE: CASE EVENT DATE: 201905
